FAERS Safety Report 4842514-6 (Version None)
Quarter: 2005Q4

REPORT INFORMATION
  Report Type: 
  Country: None (occurrence: None)
  Receive Date: 20051129
  Receipt Date: 20051114
  Transmission Date: 20060501
  Serious: Yes (Hospitalization, Other)
  Sender: FDA-Public Use
  Company Number: 03-000460

PATIENT
  Age: 39 Year
  Sex: Female
  Weight: 107.9 kg

DRUGS (1)
  1. OVCON-35 [Suspect]
     Indication: MENSTRUATION IRREGULAR
     Dosage: 35/400 UG, QD, ORAL
     Route: 048
     Dates: start: 20030701, end: 20031111

REACTIONS (15)
  - ANAEMIA [None]
  - CATHETER SITE HAEMATOMA [None]
  - DEEP VEIN THROMBOSIS [None]
  - ELECTROCARDIOGRAM CHANGE [None]
  - FIBRIN D DIMER INCREASED [None]
  - LOSS OF CONSCIOUSNESS [None]
  - MITRAL VALVE INCOMPETENCE [None]
  - MYOCARDIAL INFARCTION [None]
  - OVARIAN CYST [None]
  - PULMONARY EMBOLISM [None]
  - SYNCOPE [None]
  - THROMBOPHLEBITIS [None]
  - TRICUSPID VALVE INCOMPETENCE [None]
  - TROPONIN INCREASED [None]
  - VENTRICULAR DYSFUNCTION [None]
